FAERS Safety Report 19944836 (Version 2)
Quarter: 2021Q4

REPORT INFORMATION
  Report Type: Report from Study
  Country: IL (occurrence: IL)
  Receive Date: 20211011
  Receipt Date: 20211110
  Transmission Date: 20220304
  Serious: Yes (Life-Threatening, Other)
  Sender: FDA-Public Use
  Company Number: IL-NOVARTISPH-NVSC2021IL227956

PATIENT
  Age: 8 Month
  Sex: Male
  Weight: 6 kg

DRUGS (1)
  1. ZYKADIA [Suspect]
     Active Substance: CERITINIB
     Indication: Glioma
     Dosage: 150 MG, QD
     Route: 048
     Dates: start: 20210726, end: 20210912

REACTIONS (6)
  - Acute hepatic failure [Recovered/Resolved]
  - Pneumonia [Unknown]
  - Illness [Unknown]
  - Pyrexia [Unknown]
  - Dehydration [Unknown]
  - Vomiting [Unknown]

NARRATIVE: CASE EVENT DATE: 20210912
